FAERS Safety Report 6403423-4 (Version None)
Quarter: 2009Q4

REPORT INFORMATION
  Report Type: 
  Country: None (occurrence: None)
  Receive Date: 20091016
  Receipt Date: 20091007
  Transmission Date: 20100525
  Serious: Yes (Other)
  Sender: FDA-Public Use
  Company Number: GB-TYCO HEALTHCARE/MALLINCKRODT-T200901876

PATIENT

DRUGS (1)
  1. TRAMADOL [Suspect]
     Indication: ARTHRALGIA
     Dosage: 100 MG, QID

REACTIONS (3)
  - DYSSTASIA [None]
  - GAIT DISTURBANCE [None]
  - TREMOR [None]
